FAERS Safety Report 5521757-2 (Version None)
Quarter: 2007Q4

REPORT INFORMATION
  Report Type: 
  Country: None (occurrence: None)
  Receive Date: 20071120
  Receipt Date: 20071108
  Transmission Date: 20080405
  Serious: Yes (Other)
  Sender: FDA-Public Use
  Company Number: PHMT2007CA02233

PATIENT
  Age: 53 Year
  Sex: Female
  Weight: 46.5 kg

DRUGS (13)
  1. RECLAST [Suspect]
     Indication: OSTEOPOROSIS
     Dosage: 5 MG, ONCE A YEAR
     Route: 042
     Dates: start: 20071025
  2. FENOFIBRATE [Concomitant]
     Dosage: 160 MG, QD
  3. EZETROL [Concomitant]
     Dosage: 10 MG, QD
  4. METOPROLOL [Concomitant]
     Dosage: 50 MG, BID
  5. LOSEC/CAN/ [Concomitant]
     Dosage: 20 MG, BID
  6. LEVOTHYROXINE SODIUM [Concomitant]
     Dosage: 0.088 MG, QD
  7. IMITREX [Concomitant]
     Dosage: 100 MG, PRN
  8. ZOFRAN [Concomitant]
     Dosage: 4 MG, PRN
  9. FOSAMAX [Concomitant]
     Dosage: 70 MG, ONCE A WEEK
  10. MIRTAZAPINE [Concomitant]
     Dosage: 30 MG, TID, BEDTIME
  11. LAMOTRIGINE [Concomitant]
     Dosage: 100 MG, TID, BEDTIME
  12. CIPRALEX/DEN/ [Concomitant]
     Dosage: 20 MG, QD
  13. ZOPICLONE [Concomitant]
     Dosage: 7.5 MG, BID, BEDTIME

REACTIONS (9)
  - ARTHRALGIA [None]
  - BONE PAIN [None]
  - CYSTITIS [None]
  - DYSPNOEA [None]
  - HYPOVENTILATION [None]
  - MYALGIA [None]
  - NAUSEA [None]
  - PARAESTHESIA [None]
  - PARAESTHESIA ORAL [None]
